FAERS Safety Report 12496750 (Version 4)
Quarter: 2017Q1

REPORT INFORMATION
  Report Type: Report from Study
  Country: CA (occurrence: CA)
  Receive Date: 20160624
  Receipt Date: 20170308
  Transmission Date: 20170428
  Serious: Yes (Other)
  Sender: FDA-Public Use
  Company Number: CA-AMGEN-CANSL2016079602

PATIENT
  Age: 79 Year
  Sex: Female

DRUGS (7)
  1. LIPITOR [Concomitant]
     Active Substance: ATORVASTATIN CALCIUM
     Dosage: UNK
  2. PROLIA [Suspect]
     Active Substance: DENOSUMAB
     Indication: PRODUCT USED FOR UNKNOWN INDICATION
     Dosage: 60 MG/ML, UNK
     Route: 065
     Dates: start: 20121210
  3. VITAMIN D [Concomitant]
     Active Substance: CHOLECALCIFEROL
     Dosage: UNK
     Route: 065
  4. CALCIUM [Concomitant]
     Active Substance: CALCIUM
     Indication: PRODUCT USED FOR UNKNOWN INDICATION
     Dosage: UNK
     Route: 065
  5. ATACAND [Concomitant]
     Active Substance: CANDESARTAN CILEXETIL
     Dosage: 8 MG, UNK
  6. LOZID [Concomitant]
     Dosage: UNK
     Dates: end: 201507
  7. ASA [Concomitant]
     Active Substance: ASPIRIN

REACTIONS (10)
  - Myalgia [Not Recovered/Not Resolved]
  - Aortic calcification [Unknown]
  - Paraesthesia [Not Recovered/Not Resolved]
  - Respiratory disorder [Unknown]
  - Pain in extremity [Unknown]
  - Irregular breathing [Unknown]
  - Blood pressure increased [Unknown]
  - Gait disturbance [Unknown]
  - Dyspnoea [Unknown]
  - Asthenia [Unknown]

NARRATIVE: CASE EVENT DATE: 2014
